FAERS Safety Report 5215399-6 (Version None)
Quarter: 2007Q1

REPORT INFORMATION
  Report Type: 
  Country: None (occurrence: None)
  Receive Date: 20070116
  Receipt Date: 20070103
  Transmission Date: 20070707
  Serious: No
  Sender: FDA-Public Use
  Company Number: 2007-152550-NL

PATIENT
  Age: 43 Year
  Sex: Female

DRUGS (4)
  1. ROCURONIUM BROMIDE [Suspect]
     Indication: ANAESTHESIA
     Dosage: 40 MG ONCE INTRAVENOUS (NOS)
     Route: 042
  2. PROPOFOL [Concomitant]
  3. MIDAZOLAM HCL [Concomitant]
  4. FENTANYL [Concomitant]

REACTIONS (6)
  - CYANOSIS [None]
  - EYELID OEDEMA [None]
  - HYPOTENSION [None]
  - RASH ERYTHEMATOUS [None]
  - TONGUE OEDEMA [None]
  - URTICARIA [None]
